FAERS Safety Report 5587402-5 (Version None)
Quarter: 2007Q4

REPORT INFORMATION
  Report Type: 
  Country: None (occurrence: None)
  Receive Date: 20071207
  Receipt Date: 20070725
  Transmission Date: 20080405
  Serious: Yes (Other)
  Sender: FDA-Public Use
  Company Number: 2007061772

PATIENT
  Age: 64 Year
  Sex: Male
  Weight: 80.45 kg

DRUGS (1)
  1. VIAGRA [Suspect]
     Indication: ERECTILE DYSFUNCTION
     Dosage: 50 MG (50 MG,AS NECESSARY)

REACTIONS (1)
  - HAEMATURIA [None]
